FAERS Safety Report 4579619-3 (Version None)
Quarter: 2005Q1

REPORT INFORMATION
  Report Type: 
  Country: None (occurrence: None)
  Receive Date: 20050210
  Receipt Date: 20050128
  Transmission Date: 20050727
  Serious: Yes (Death)
  Sender: FDA-Public Use
  Company Number: 2005-DE-00402BY

PATIENT
  Sex: Female

DRUGS (6)
  1. KINZLKOMB (MICARDIS HCT) [Suspect]
     Indication: HYPERTENSION
     Dosage: PO
     Route: 048
     Dates: start: 20050113
  2. ASS 300 [Concomitant]
  3. NOVODIGAL 0.2 [Concomitant]
  4. NORVASC [Concomitant]
  5. ENABETA (ENALAPRIL MALEATE) [Concomitant]
  6. DIURETICS (DIURETICS) [Concomitant]

REACTIONS (1)
  - DEATH [None]
